FAERS Safety Report 18199344 (Version 1)
Quarter: 2020Q3

REPORT INFORMATION
  Report Type: Spontaneous
  Country: US (occurrence: US)
  Receive Date: 20200826
  Receipt Date: 20200826
  Transmission Date: 20201103
  Serious: No
  Sender: FDA-Public Use
  Company Number: US-SA-2020SA227067

PATIENT

DRUGS (1)
  1. CAPRELSA [Suspect]
     Active Substance: VANDETANIB
     Indication: THYROID CANCER
     Dosage: DRUG STRUCTURE DOSAGE : 300 MG
     Route: 048

REACTIONS (2)
  - Tremor [Recovered/Resolved]
  - Diarrhoea [Recovered/Resolved]
